FAERS Safety Report 5484453-6 (Version None)
Quarter: 2007Q4

REPORT INFORMATION
  Report Type: 
  Country: None (occurrence: None)
  Receive Date: 20071010
  Receipt Date: 20070927
  Transmission Date: 20080405
  Serious: Yes (Hospitalization)
  Sender: FDA-Public Use
  Company Number: SPV1-2007-04328

PATIENT
  Age: 8 Year
  Sex: Male
  Weight: 20.9 kg

DRUGS (3)
  1. DAYTRANA [Suspect]
     Indication: ATTENTION DEFICIT/HYPERACTIVITY DISORDER
     Dosage: 10 MG, 1X/DAY:QD,TRANSDERMAL; 20 MG, 1X/DAY:QD; 10 MG,1X/DAY: QD
     Route: 048
     Dates: start: 20070101, end: 20070101
  2. DAYTRANA [Suspect]
     Indication: ATTENTION DEFICIT/HYPERACTIVITY DISORDER
     Dosage: 10 MG, 1X/DAY:QD,TRANSDERMAL; 20 MG, 1X/DAY:QD; 10 MG,1X/DAY: QD
     Route: 048
     Dates: start: 20070101, end: 20070101
  3. DAYTRANA [Suspect]
     Indication: ATTENTION DEFICIT/HYPERACTIVITY DISORDER
     Dosage: 10 MG, 1X/DAY:QD,TRANSDERMAL; 20 MG, 1X/DAY:QD; 10 MG,1X/DAY: QD
     Route: 048
     Dates: start: 20070101

REACTIONS (2)
  - ABNORMAL BEHAVIOUR [None]
  - FOREIGN BODY TRAUMA [None]
